FAERS Safety Report 13162119 (Version 1)
Quarter: 2017Q1

REPORT INFORMATION
  Report Type: Spontaneous
  Country: US (occurrence: US)
  Receive Date: 20170130
  Receipt Date: 20170130
  Transmission Date: 20170428
  Serious: No
  Sender: FDA-Public Use
  Company Number: US-PFIZER INC-2017036838

PATIENT
  Sex: Female

DRUGS (2)
  1. XELJANZ [Suspect]
     Active Substance: TOFACITINIB CITRATE
     Dosage: UNK
  2. HYDROXYCHLOROQUINE [Suspect]
     Active Substance: HYDROXYCHLOROQUINE
     Dosage: UNK

REACTIONS (21)
  - Dizziness [Unknown]
  - Tremor [Unknown]
  - Alopecia [Unknown]
  - Laboratory test abnormal [Unknown]
  - Musculoskeletal stiffness [Unknown]
  - Dry skin [Unknown]
  - Flatulence [Unknown]
  - Kyphosis [Unknown]
  - Constipation [Unknown]
  - Headache [Unknown]
  - Arthralgia [Unknown]
  - Dry mouth [Unknown]
  - Cough [Unknown]
  - Back pain [Unknown]
  - Anxiety [Unknown]
  - Head titubation [Unknown]
  - Synovitis [Unknown]
  - Dry eye [Unknown]
  - Eye pain [Unknown]
  - Weight increased [Unknown]
  - Dyspepsia [Unknown]
